FAERS Safety Report 10264673 (Version 2)
Quarter: 2014Q3

REPORT INFORMATION
  Report Type: Report from Study
  Country: US (occurrence: US)
  Receive Date: 20140627
  Receipt Date: 20140710
  Transmission Date: 20150326
  Serious: Yes (Hospitalization, Disabling)
  Sender: FDA-Public Use
  Company Number: US-SA-2014SA081835

PATIENT
  Age: 66 Year
  Sex: Male

DRUGS (1)
  1. LANTUS [Suspect]
     Active Substance: INSULIN GLARGINE
     Indication: DIABETES MELLITUS
     Dosage: DOSE:65 UNIT(S)
     Route: 065

REACTIONS (5)
  - Cerebrovascular accident [Not Recovered/Not Resolved]
  - Gait disturbance [Not Recovered/Not Resolved]
  - Speech disorder [Not Recovered/Not Resolved]
  - Choking [Not Recovered/Not Resolved]
  - Dysphagia [Not Recovered/Not Resolved]

NARRATIVE: CASE EVENT DATE: 2005
